FAERS Safety Report 6172219-3 (Version None)
Quarter: 2009Q2

REPORT INFORMATION
  Report Type: 
  Country: None (occurrence: None)
  Receive Date: 20090429
  Receipt Date: 20090306
  Transmission Date: 20091009
  Serious: No
  Sender: FDA-Public Use
  Company Number: A0750574A

PATIENT
  Age: 36 Year
  Sex: Female

DRUGS (1)
  1. ZOFRAN [Suspect]
     Indication: NAUSEA
     Dosage: 4MG PER DAY
     Route: 048
     Dates: end: 20061022

REACTIONS (2)
  - DRUG EXPOSURE DURING PREGNANCY [None]
  - LIVE BIRTH [None]
